FAERS Safety Report 4758583-8 (Version None)
Quarter: 2005Q3

REPORT INFORMATION
  Report Type: 
  Country: None (occurrence: None)
  Receive Date: 20050901
  Receipt Date: 20050825
  Transmission Date: 20060218
  Serious: Yes (Hospitalization, Disabling)
  Sender: FDA-Public Use
  Company Number: US-JNJFOC-20050806305

PATIENT
  Sex: Male
  Weight: 79.83 kg

DRUGS (5)
  1. DURAGESIC-100 [Suspect]
     Route: 062
  2. PERCOCET [Concomitant]
  3. PERCOCET [Concomitant]
  4. SOMA [Concomitant]
  5. CLONOPINE [Concomitant]

REACTIONS (2)
  - HYPERHIDROSIS [None]
  - MYOCARDIAL INFARCTION [None]
